FAERS Safety Report 16248343 (Version 1)
Quarter: 2019Q2

REPORT INFORMATION
  Report Type: Spontaneous
  Country: CL (occurrence: CL)
  Receive Date: 20190429
  Receipt Date: 20190429
  Transmission Date: 20190711
  Serious: Yes (Hospitalization, Other)
  Sender: FDA-Public Use
  Company Number: CL-AMGEN-CHLSP2019064954

PATIENT
  Sex: Female

DRUGS (1)
  1. ENBREL [Suspect]
     Active Substance: ETANERCEPT
     Indication: RHEUMATOID ARTHRITIS
     Dosage: 50 MILLIGRAM
     Route: 065

REACTIONS (4)
  - Dermatitis exfoliative generalised [Unknown]
  - Skin lesion [Unknown]
  - Lower respiratory tract infection [Unknown]
  - Localised infection [Unknown]
